FAERS Safety Report 24200907 (Version 2)
Quarter: 2025Q1

REPORT INFORMATION
  Report Type: Report from Study
  Country: US (occurrence: US)
  Receive Date: 20240812
  Receipt Date: 20250219
  Transmission Date: 20250409
  Serious: Yes (Hospitalization)
  Sender: SUNOVION
  Company Number: US-SUMITOMO PHARMA SWITZERLAND GMBH-2024SPA000637

PATIENT

DRUGS (2)
  1. ORGOVYX [Suspect]
     Active Substance: RELUGOLIX
     Indication: Prostate cancer
     Dosage: 360 MG, SINGLE
     Route: 048
     Dates: start: 20230707, end: 20230707
  2. ORGOVYX [Suspect]
     Active Substance: RELUGOLIX
     Dosage: 120 MG, QD
     Route: 048
     Dates: start: 20230708

REACTIONS (8)
  - Cardiac pacemaker insertion [Unknown]
  - Blood pressure abnormal [Unknown]
  - Arthropathy [Unknown]
  - Gait disturbance [Unknown]
  - Arthralgia [Unknown]
  - Weight increased [Unknown]
  - Arthritis [Unknown]
  - Product dose omission issue [Unknown]
